FAERS Safety Report 9214666 (Version 6)
Quarter: 2013Q3

REPORT INFORMATION
  Report Type: Report from Study
  Country: US (occurrence: US)
  Receive Date: 20130405
  Receipt Date: 20130705
  Transmission Date: 20140515
  Serious: Yes (Other)
  Sender: FDA-Public Use
  Company Number: US-ABBOTT-13P-163-1069921-00

PATIENT
  Age: 22 Year
  Sex: Female
  Weight: 143.92 kg

DRUGS (6)
  1. HUMIRA [Suspect]
     Indication: HIDRADENITIS
     Dates: start: 20121024, end: 20130315
  2. IMPLANTABLE BIRTH CONTROL [Concomitant]
     Indication: CONTRACEPTION
     Dosage: IMPLANTABLE: IN LEFT UPPER ARM
  3. KENALOG [Concomitant]
     Indication: HIDRADENITIS
  4. HIBICLENS [Concomitant]
     Indication: PRODUCT USED FOR UNKNOWN INDICATION
  5. BLEACH BATH [Concomitant]
     Dosage: WEEKLY
  6. GENTIAN VIOLET [Concomitant]
     Indication: PRODUCT USED FOR UNKNOWN INDICATION

REACTIONS (13)
  - Lymphadenopathy [Unknown]
  - Radiation skin injury [Recovered/Resolved]
  - Pallor [Unknown]
  - Erythema [Recovered/Resolved]
  - Off label use [Not Recovered/Not Resolved]
  - Hidradenitis [Not Recovered/Not Resolved]
  - Cellulitis [Unknown]
  - Radiation skin injury [Unknown]
  - Contusion [Unknown]
  - Nodule [Unknown]
  - Scar [Unknown]
  - Erythema [Unknown]
  - Sinus operation [Unknown]
